FAERS Safety Report 9409437 (Version 3)
Quarter: 2013Q3

REPORT INFORMATION
  Report Type: Report from Study
  Country: IL (occurrence: IL)
  Receive Date: 20130719
  Receipt Date: 20130805
  Transmission Date: 20140515
  Serious: Yes (Death)
  Sender: FDA-Public Use
  Company Number: IL-ROCHE-1064827

PATIENT
  Age: 35 Year
  Sex: Male

DRUGS (3)
  1. TOCILIZUMAB [Suspect]
     Indication: RENAL AMYLOIDOSIS
     Route: 065
     Dates: start: 20110801
  2. TOCILIZUMAB [Suspect]
     Indication: OFF LABEL USE
  3. PREDNISONE [Concomitant]
     Indication: PRURITUS

REACTIONS (2)
  - Pruritus [Unknown]
  - Sepsis [Fatal]
